FAERS Safety Report 6430314-5 (Version None)
Quarter: 2009Q4

REPORT INFORMATION
  Report Type: 
  Country: None (occurrence: None)
  Receive Date: 20091106
  Receipt Date: 20090917
  Transmission Date: 20100525
  Serious: Yes (Disabling)
  Sender: FDA-Public Use
  Company Number: BR-PFIZER INC-2009267470

PATIENT
  Age: 46 Year
  Sex: Female
  Weight: 90 kg

DRUGS (2)
  1. CHAMPIX [Suspect]
     Indication: SMOKING CESSATION THERAPY
     Dosage: UNK
     Route: 048
     Dates: start: 20090907
  2. FORASEQ [Concomitant]
     Dosage: UNK

REACTIONS (7)
  - ANXIETY [None]
  - CRYING [None]
  - DYSPEPSIA [None]
  - FATIGUE [None]
  - ILL-DEFINED DISORDER [None]
  - MALAISE [None]
  - VOMITING [None]
